FAERS Safety Report 18040703 (Version 2)
Quarter: 2020Q3

REPORT INFORMATION
  Report Type: Report from Study
  Country: US (occurrence: US)
  Receive Date: 20200717
  Receipt Date: 20200916
  Transmission Date: 20201103
  Serious: Yes (Death, Hospitalization)
  Sender: FDA-Public Use
  Company Number: US-SEATTLE GENETICS-2020SGN02606

PATIENT
  Sex: Female

DRUGS (2)
  1. TUCATINIB [Suspect]
     Active Substance: TUCATINIB
     Indication: BREAST CANCER FEMALE
     Dosage: UNK
  2. CAPECITABINE. [Concomitant]
     Active Substance: CAPECITABINE
     Indication: BREAST CANCER FEMALE

REACTIONS (8)
  - Vomiting [Recovered/Resolved]
  - Pain [Unknown]
  - Nausea [Unknown]
  - Death [Fatal]
  - Constipation [Unknown]
  - Diarrhoea [Recovered/Resolved]
  - Deep vein thrombosis [Unknown]
  - Gastrooesophageal reflux disease [Unknown]
